FAERS Safety Report 8710970 (Version 2)
Quarter: 2012Q4

REPORT INFORMATION
  Report Type: 
  Country: DE (occurrence: DE)
  Receive Date: 20120807
  Receipt Date: 20120914
  Transmission Date: 20130627
  Serious: Yes (Hospitalization, Other)
  Sender: FDA-Public Use
  Company Number: DE-US-EMD SERONO, INC.-7143824

PATIENT
  Age: 50 None
  Sex: Male

DRUGS (7)
  1. REBIF [Suspect]
     Indication: MULTIPLE SCLEROSIS
     Route: 058
     Dates: start: 2004, end: 201207
  2. RAMIPRIL [Concomitant]
     Indication: PRODUCT USED FOR UNKNOWN INDICATION
     Route: 048
  3. AMLODIPINE [Concomitant]
     Indication: PRODUCT USED FOR UNKNOWN INDICATION
     Route: 048
  4. GABAPENTINE [Concomitant]
     Indication: PRODUCT USED FOR UNKNOWN INDICATION
     Route: 048
  5. OPIPRAMOL [Concomitant]
     Indication: PRODUCT USED FOR UNKNOWN INDICATION
     Route: 048
  6. PANTOZOL [Concomitant]
     Indication: PRODUCT USED FOR UNKNOWN INDICATION
     Route: 048
  7. MOXONIDINE [Concomitant]
     Indication: PRODUCT USED FOR UNKNOWN INDICATION
     Route: 048

REACTIONS (12)
  - Skin ulcer [Recovering/Resolving]
  - Dermatitis [Recovering/Resolving]
  - Panniculitis [Recovering/Resolving]
  - Erysipelas [Recovering/Resolving]
  - Grand mal convulsion [Unknown]
  - Hepatic steatosis [Unknown]
  - Livedo reticularis [Recovering/Resolving]
  - Lymphoedema [Unknown]
  - Injection site abscess [Recovered/Resolved]
  - Skin reaction [Recovered/Resolved]
  - Injection site necrosis [Recovered/Resolved]
  - Wrong technique in drug usage process [Unknown]
